FAERS Safety Report 9600903 (Version 2)
Quarter: 2013Q4

REPORT INFORMATION
  Report Type: Spontaneous
  Country: US (occurrence: US)
  Receive Date: 20131004
  Receipt Date: 20131004
  Transmission Date: 20140711
  Serious: No
  Sender: FDA-Public Use
  Company Number: US-JNJFOC-20130802778

PATIENT
  Sex: Female

DRUGS (2)
  1. ROGAINE FOR MEN EXTRA STRENGTH [Suspect]
     Route: 061
  2. ROGAINE FOR MEN EXTRA STRENGTH [Suspect]
     Indication: HAIR GROWTH ABNORMAL
     Dosage: A LITTLE MORE THAN 1ML
     Route: 061

REACTIONS (2)
  - Wrong patient received medication [Unknown]
  - Alopecia [Unknown]
